FAERS Safety Report 23428678 (Version 1)
Quarter: 2024Q1

REPORT INFORMATION
  Report Type: Spontaneous
  Country: CA (occurrence: CA)
  Receive Date: 20240122
  Receipt Date: 20240122
  Transmission Date: 20240409
  Serious: Yes (Life-Threatening, Other)
  Sender: FDA-Public Use
  Company Number: CA-FreseniusKabi-FK202401002

PATIENT
  Age: 42 Year
  Sex: Female

DRUGS (6)
  1. FENTANYL [Suspect]
     Active Substance: FENTANYL\FENTANYL CITRATE
     Indication: Analgesic therapy
     Dosage: FREQUENCY: AS REQUIRED?FORM OF ADMINISTRATION: NOT SPECIFIED
  2. BUPIVACAINE HYDROCHLORIDE [Suspect]
     Active Substance: BUPIVACAINE HYDROCHLORIDE\BUPIVACAINE HYDROCHLORIDE ANHYDROUS
     Indication: Analgesic therapy
     Route: 008
  3. INSULIN LENTE [Concomitant]
     Indication: Product used for unknown indication
  4. IRON [Concomitant]
     Active Substance: IRON
     Indication: Product used for unknown indication
  5. OXYTOCIN [Concomitant]
     Active Substance: OXYTOCIN
     Indication: Product used for unknown indication
  6. PRENATAL MULTIPLE VITAMIN [Concomitant]
     Indication: Product used for unknown indication

REACTIONS (2)
  - Bradycardia foetal [Recovered/Resolved]
  - Post procedural hypotension [Recovered/Resolved]
